FAERS Safety Report 15411221 (Version 1)
Quarter: 2018Q3

REPORT INFORMATION
  Report Type: Spontaneous
  Country: US (occurrence: US)
  Receive Date: 20180919
  Receipt Date: 20180919
  Transmission Date: 20181010
  Serious: Yes (Hospitalization, Disabling)
  Sender: FDA-Public Use
  Company Number: None

PATIENT
  Age: 53 Year
  Sex: Female
  Weight: 65.25 kg

DRUGS (6)
  1. MULTIVITAMINS [Concomitant]
     Active Substance: VITAMINS
  2. TIROSINT [Suspect]
     Active Substance: LEVOTHYROXINE SODIUM
     Indication: AUTOIMMUNE THYROIDITIS
     Dosage: ?          OTHER STRENGTH:CG;QUANTITY:1 DF DOSAGE FORM;?
     Route: 048
     Dates: start: 20180801, end: 20180827
  3. PROBIO 5 [Concomitant]
  4. BOWEL MOVE [Concomitant]
  5. LIOTHYRONINE [Concomitant]
     Active Substance: LIOTHYRONINE
  6. ARMOUR THYROID [Concomitant]
     Active Substance: THYROID, PORCINE

REACTIONS (9)
  - Weight increased [None]
  - Abdominal distension [None]
  - Insomnia [None]
  - Sensation of foreign body [None]
  - Abdominal pain upper [None]
  - Hypophagia [None]
  - Product substitution issue [None]
  - Drug ineffective [None]
  - Constipation [None]

NARRATIVE: CASE EVENT DATE: 20180828
